FAERS Safety Report 13701755 (Version 1)
Quarter: 2017Q2

REPORT INFORMATION
  Report Type: Spontaneous
  Country: BE (occurrence: BE)
  Receive Date: 20170629
  Receipt Date: 20170629
  Transmission Date: 20170830
  Serious: Yes (Hospitalization)
  Sender: FDA-Public Use
  Company Number: BE-JNJFOC-20170622969

PATIENT
  Sex: Male

DRUGS (1)
  1. REMICADE [Suspect]
     Active Substance: INFLIXIMAB
     Indication: CROHN^S DISEASE
     Route: 042

REACTIONS (4)
  - Acute kidney injury [Unknown]
  - Multiple organ dysfunction syndrome [Unknown]
  - Bicuspid aortic valve [Unknown]
  - Shock [Unknown]

NARRATIVE: CASE EVENT DATE: 201706
